FAERS Safety Report 24982308 (Version 2)
Quarter: 2025Q1

REPORT INFORMATION
  Report Type: Spontaneous
  Country: US (occurrence: US)
  Receive Date: 20250218
  Receipt Date: 20250220
  Transmission Date: 20250409
  Serious: No
  Sender: ELI LILLY AND COMPANY
  Company Number: US-ELI_LILLY_AND_COMPANY-US202502012303

PATIENT
  Age: 63 Year
  Sex: Female

DRUGS (3)
  1. HUMULIN R U-500 [Suspect]
     Active Substance: INSULIN HUMAN
     Indication: Type 1 diabetes mellitus
     Dosage: 120 U, EACH MORNING
     Route: 058
  2. HUMULIN R U-500 [Suspect]
     Active Substance: INSULIN HUMAN
     Route: 058
  3. HUMULIN R U-500 [Suspect]
     Active Substance: INSULIN HUMAN
     Dosage: 40 U, EACH EVENING
     Route: 058

REACTIONS (1)
  - Eye infection [Recovering/Resolving]

NARRATIVE: CASE EVENT DATE: 20241201
